FAERS Safety Report 13026932 (Version 1)
Quarter: 2016Q4

REPORT INFORMATION
  Report Type: Spontaneous
  Country: FR (occurrence: FR)
  Receive Date: 20161214
  Receipt Date: 20161214
  Transmission Date: 20170207
  Serious: Yes (Life-Threatening, Other)
  Sender: FDA-Public Use
  Company Number: FR-PFIZER INC-2016569457

PATIENT
  Age: 73 Year
  Sex: Male

DRUGS (2)
  1. SUTENT [Suspect]
     Active Substance: SUNITINIB MALATE
     Indication: RENAL CANCER METASTATIC
     Dosage: 75 MG, 2 WEEKS OVER 3
     Route: 048
     Dates: start: 20160223, end: 201607
  2. SUTENT [Suspect]
     Active Substance: SUNITINIB MALATE
     Dosage: 25 MG, DAILY
     Route: 048
     Dates: start: 201608, end: 201608

REACTIONS (4)
  - Pseudomonas infection [Unknown]
  - Cardiac tamponade [Recovering/Resolving]
  - Pericardial effusion [Recovering/Resolving]
  - Neoplasm progression [Unknown]

NARRATIVE: CASE EVENT DATE: 20160826
